FAERS Safety Report 17863353 (Version 2)
Quarter: 2020Q2

REPORT INFORMATION
  Report Type: Spontaneous
  Country: US (occurrence: US)
  Receive Date: 20200605
  Receipt Date: 20200612
  Transmission Date: 20200714
  Serious: No
  Sender: FDA-Public Use
  Company Number: US-AMGEN-USASP2020082105

PATIENT
  Age: 66 Year
  Sex: Male

DRUGS (1)
  1. BLINCYTO [Suspect]
     Active Substance: BLINATUMOMAB
     Indication: ACUTE LYMPHOCYTIC LEUKAEMIA RECURRENT
     Dosage: PREPARED DOSE FOR 7-DAY BAG: 210 MCG ^STANDARD 7-DAY BAG PREPARATION
     Route: 065
     Dates: start: 20200508

REACTIONS (3)
  - Wrong device used [Unknown]
  - Incorrect drug administration rate [Unknown]
  - Overdose [Unknown]

NARRATIVE: CASE EVENT DATE: 20200514
